FAERS Safety Report 16155501 (Version 4)
Quarter: 2019Q2

REPORT INFORMATION
  Report Type: Report from Study
  Country: None (occurrence: CH)
  Receive Date: 20190404
  Receipt Date: 20190426
  Transmission Date: 20190711
  Serious: Yes (Other)
  Sender: FDA-Public Use
  Company Number: CH-ABBVIE-19S-151-2729977-00

PATIENT
  Age: 74 Year
  Sex: Male

DRUGS (5)
  1. DUODOPA [Suspect]
     Active Substance: CARBIDOPA\LEVODOPA
     Indication: PARKINSON^S DISEASE
     Route: 050
     Dates: start: 20120301, end: 20180108
  2. DUODOPA [Suspect]
     Active Substance: CARBIDOPA\LEVODOPA
     Dosage: MD 2 ML, CD DAY 2.5 ML/H, CD NIGHT 1.9 ML/H, ED 0.5 ML, 24 H THERAPY
     Route: 050
     Dates: start: 20180108, end: 20180717
  3. DUODOPA [Suspect]
     Active Substance: CARBIDOPA\LEVODOPA
     Dosage: MD 2 ML, CD DAY 2.7 ML/H, CD NIGHT 1.9 ML/H, ED 1 ML, 24 H THERAPY
     Route: 050
     Dates: start: 20180717, end: 20190331
  4. DUODOPA [Suspect]
     Active Substance: CARBIDOPA\LEVODOPA
     Dosage: MD 2 ML, CR DAY 2.7 ML/H, CR NIGHT 1.9 ML/H, ED 1 M 24H THERAPY
     Route: 050
     Dates: start: 20190402
  5. DUODOPA [Suspect]
     Active Substance: CARBIDOPA\LEVODOPA
     Dosage: MD 2 ML, CD DAY 2.7 ML/H, CD NIGHT 1.9 ML/H, EXTRA DOSE 1 ML, 24 H THERAPY
     Route: 050
     Dates: start: 20190331, end: 20190402

REACTIONS (6)
  - Device occlusion [Recovered/Resolved]
  - Cataract [Not Recovered/Not Resolved]
  - Limb discomfort [Not Recovered/Not Resolved]
  - Cardiac failure [Not Recovered/Not Resolved]
  - Device alarm issue [Recovered/Resolved]
  - Off label use [Recovered/Resolved]

NARRATIVE: CASE EVENT DATE: 20190331
